FAERS Safety Report 5484483-4 (Version None)
Quarter: 2007Q4

REPORT INFORMATION
  Report Type: 
  Country: None (occurrence: None)
  Receive Date: 20071009
  Receipt Date: 20071001
  Transmission Date: 20080405
  Serious: Yes (Other)
  Sender: FDA-Public Use
  Company Number: 2007332274

PATIENT
  Age: 65 Year
  Sex: Female
  Weight: 61.2 kg

DRUGS (4)
  1. ROGAINE [Suspect]
     Indication: ALOPECIA
     Dosage: ONE DROPPER 2 TIMES DAY (2 IN 1 D), TOPICAL
     Route: 061
     Dates: start: 20070901, end: 20070929
  2. FORADIL [Concomitant]
  3. SPIRIVA [Concomitant]
  4. ALBUTEROL [Concomitant]

REACTIONS (1)
  - RESPIRATORY DISORDER [None]
